FAERS Safety Report 7806052-0 (Version None)
Quarter: 2011Q4

REPORT INFORMATION
  Report Type: 
  Country: None (occurrence: None)
  Receive Date: 20111011
  Receipt Date: 20111003
  Transmission Date: 20120403
  Serious: Yes (Other)
  Sender: FDA-Public Use
  Company Number: FR-JNJFOC-20111002884

PATIENT
  Age: 41 Year
  Sex: Female

DRUGS (2)
  1. TOPIRAMATE [Suspect]
     Indication: MIGRAINE
     Route: 048
  2. TOPIRAMATE [Suspect]
     Route: 048

REACTIONS (5)
  - ANGLE CLOSURE GLAUCOMA [None]
  - MEMORY IMPAIRMENT [None]
  - ASTHENIA [None]
  - OPTIC NERVE INJURY [None]
  - IRRITABILITY [None]
